FAERS Safety Report 7119658-1 (Version None)
Quarter: 2010Q4

REPORT INFORMATION
  Report Type: 
  Country: None (occurrence: None)
  Receive Date: 20101123
  Receipt Date: 20101118
  Transmission Date: 20110411
  Serious: Yes (Death, Hospitalization)
  Sender: FDA-Public Use
  Company Number: PHEH2007US16419

PATIENT
  Sex: Male
  Weight: 175 kg

DRUGS (2)
  1. EXJADE [Suspect]
     Indication: IRON OVERLOAD
     Dosage: 500 MG DAILY
     Route: 048
     Dates: start: 20060530, end: 20061020
  2. REVLIMID [Concomitant]
     Dosage: 5 MG, UNK
     Route: 048
     Dates: start: 20070107

REACTIONS (14)
  - ASTHENIA [None]
  - BLOOD ALKALINE PHOSPHATASE INCREASED [None]
  - CONFUSIONAL STATE [None]
  - DEATH [None]
  - GENERAL PHYSICAL HEALTH DETERIORATION [None]
  - HAEMOPTYSIS [None]
  - HYPOTENSION [None]
  - MYELOFIBROSIS [None]
  - NAUSEA [None]
  - OCCULT BLOOD POSITIVE [None]
  - PNEUMONIA ASPIRATION [None]
  - PYREXIA [None]
  - SEPSIS [None]
  - VOMITING [None]
